FAERS Safety Report 8801216 (Version 1)
Quarter: 2012Q4

REPORT INFORMATION
  Report Type: Report from Study
  Country: FR (occurrence: FR)
  Receive Date: 20120921
  Receipt Date: 20120921
  Transmission Date: 20130627
  Serious: Yes (Hospitalization, Other)
  Sender: FDA-Public Use
  Company Number: FR-ROCHE-1123873

PATIENT
  Age: 62 Year
  Sex: Female
  Weight: 74 kg

DRUGS (31)
  1. ROACTEMRA [Suspect]
     Indication: RHEUMATOID ARTHRITIS
     Route: 042
     Dates: start: 20110223
  2. ROACTEMRA [Suspect]
     Route: 042
     Dates: start: 20110520
  3. ROACTEMRA [Suspect]
     Route: 042
     Dates: start: 20110424
  4. ROACTEMRA [Suspect]
     Route: 042
     Dates: start: 20110520
  5. ROACTEMRA [Suspect]
     Route: 042
     Dates: start: 20110620
  6. ROACTEMRA [Suspect]
     Route: 042
     Dates: start: 20110720
  7. ROACTEMRA [Suspect]
     Route: 042
     Dates: start: 20110819
  8. ROACTEMRA [Suspect]
     Route: 042
     Dates: start: 20110920
  9. ROACTEMRA [Suspect]
     Route: 042
     Dates: start: 20111018
  10. ROACTEMRA [Suspect]
     Route: 042
     Dates: start: 20111117
  11. ROACTEMRA [Suspect]
     Route: 042
     Dates: start: 20120112
  12. ROACTEMRA [Suspect]
     Route: 042
     Dates: start: 20120209
  13. CORTANCYL [Concomitant]
     Route: 065
     Dates: start: 20110223
  14. CORTANCYL [Concomitant]
     Route: 065
     Dates: start: 20110424
  15. CORTANCYL [Concomitant]
     Route: 065
     Dates: start: 20110520
  16. CORTANCYL [Concomitant]
     Route: 065
     Dates: start: 20110525
  17. CORTANCYL [Concomitant]
     Route: 065
     Dates: start: 20110620
  18. CORTANCYL [Concomitant]
     Route: 065
     Dates: start: 20110720
  19. CORTANCYL [Concomitant]
     Route: 065
     Dates: start: 20110819
  20. CORTANCYL [Concomitant]
     Route: 065
     Dates: start: 20110920
  21. CORTANCYL [Concomitant]
     Route: 065
     Dates: start: 20111018
  22. CORTANCYL [Concomitant]
     Route: 065
     Dates: start: 20111117
  23. CORTANCYL [Concomitant]
     Route: 065
     Dates: start: 20120112
  24. CORTANCYL [Concomitant]
     Route: 065
     Dates: start: 20120209
  25. CORTANCYL [Concomitant]
     Route: 065
  26. DAFALGAN [Concomitant]
     Dosage: dose: 500 mg
     Route: 065
  27. LEVOTHYROX [Concomitant]
     Route: 065
  28. TEMERIT [Concomitant]
     Route: 065
  29. HYDROCORTISONE [Concomitant]
     Route: 065
  30. ACTONEL [Concomitant]
     Route: 065
  31. CRESTOR [Concomitant]
     Route: 065

REACTIONS (11)
  - Renal failure [Recovered/Resolved]
  - Weight increased [Not Recovered/Not Resolved]
  - Dyspnoea exertional [Recovered/Resolved]
  - Oropharyngeal pain [Recovered/Resolved]
  - Venous insufficiency [Recovered/Resolved]
  - Haematoma [Recovered/Resolved]
  - Muscle spasms [Not Recovered/Not Resolved]
  - Stress cardiomyopathy [Recovered/Resolved]
  - Cognitive disorder [Not Recovered/Not Resolved]
  - Amnesia [Not Recovered/Not Resolved]
  - Arthralgia [Recovered/Resolved]
